FAERS Safety Report 20771969 (Version 1)
Quarter: 2022Q2

REPORT INFORMATION
  Report Type: Report from Study
  Country: US (occurrence: US)
  Receive Date: 20220501
  Receipt Date: 20220501
  Transmission Date: 20220721
  Serious: Yes (Death)
  Sender: FDA-Public Use
  Company Number: US-NOVARTISPH-NVSC2022US099950

PATIENT
  Sex: Female

DRUGS (1)
  1. PROMACTA [Suspect]
     Active Substance: ELTROMBOPAG OLAMINE
     Indication: Immune thrombocytopenia
     Dosage: 50 MG, QD (TAKE 1 TABLET BY MOUTH ONCE DAILY ON AN EMPTY STOMACH, 1 HOUR BEFORE OR 2 HOURS AFTER A M
     Route: 048

REACTIONS (1)
  - Death [Fatal]
